FAERS Safety Report 6819088-3 (Version None)
Quarter: 2010Q3

REPORT INFORMATION
  Report Type: 
  Country: None (occurrence: None)
  Receive Date: 20100707
  Receipt Date: 20100630
  Transmission Date: 20110219
  Serious: Yes (Hospitalization, Other)
  Sender: FDA-Public Use
  Company Number: US-ELI_LILLY_AND_COMPANY-US201006008030

PATIENT
  Sex: Female
  Weight: 77.098 kg

DRUGS (2)
  1. BYETTA [Suspect]
     Indication: INSULIN RESISTANT DIABETES
     Dosage: 5 UG, 2/D
     Route: 058
  2. METFORMIN HCL [Concomitant]
     Indication: INSULIN RESISTANT DIABETES
     Dosage: 2000 MG, 2/D
     Route: 048

REACTIONS (4)
  - ANAESTHESIA [None]
  - MASTECTOMY [None]
  - PHLEBITIS [None]
  - THROMBOSIS [None]
